FAERS Safety Report 18152172 (Version 1)
Quarter: 2020Q3

REPORT INFORMATION
  Report Type: Report from Study
  Country: CZ (occurrence: CZ)
  Receive Date: 20200814
  Receipt Date: 20200814
  Transmission Date: 20201103
  Serious: Yes (Other)
  Sender: FDA-Public Use
  Company Number: CZ-INCYTE CORPORATION-2020IN007800

PATIENT

DRUGS (2)
  1. JAKAVI [Suspect]
     Active Substance: RUXOLITINIB
     Dosage: UNK
     Route: 065
     Dates: end: 20200518
  2. JAKAVI [Suspect]
     Active Substance: RUXOLITINIB
     Indication: THERAPEUTIC RESPONSE DECREASED
     Dosage: 20 MG, BID
     Route: 065
     Dates: start: 20200113

REACTIONS (2)
  - Anaemia [Recovering/Resolving]
  - Drug intolerance [Unknown]

NARRATIVE: CASE EVENT DATE: 20200304
